FAERS Safety Report 9617331 (Version 1)
Quarter: 2013Q4

REPORT INFORMATION
  Report Type: Spontaneous
  Country: US (occurrence: US)
  Receive Date: 20131011
  Receipt Date: 20131011
  Transmission Date: 20140711
  Serious: Yes (Hospitalization)
  Sender: FDA-Public Use
  Company Number: US-AMGEN-USASP2013070369

PATIENT
  Age: 62 Year
  Sex: Female

DRUGS (2)
  1. ENBREL [Suspect]
     Indication: RHEUMATOID ARTHRITIS
     Dosage: 50 MG, QWK
     Route: 065
     Dates: end: 201212
  2. ACTEMRA [Suspect]
     Indication: PRODUCT USED FOR UNKNOWN INDICATION
     Dosage: UNK
     Route: 065

REACTIONS (6)
  - Benign neoplasm of thyroid gland [Recovered/Resolved]
  - Arthritis [Unknown]
  - Joint swelling [Recovered/Resolved]
  - Joint effusion [Recovered/Resolved]
  - Alopecia [Not Recovered/Not Resolved]
  - Influenza [Recovered/Resolved]
